FAERS Safety Report 22352092 (Version 5)
Quarter: 2024Q3

REPORT INFORMATION
  Report Type: Spontaneous
  Country: US (occurrence: US)
  Receive Date: 20230522
  Receipt Date: 20240722
  Transmission Date: 20241017
  Serious: Yes (Other)
  Sender: PFIZER
  Company Number: US-PFIZER INC-PV202300087809

PATIENT
  Age: 66 Year
  Sex: Female
  Weight: 44.91 kg

DRUGS (4)
  1. OXBRYTA [Suspect]
     Active Substance: VOXELOTOR
     Indication: Sickle cell disease
     Dosage: 1000 MG, DAILY
     Route: 048
     Dates: start: 20200521
  2. OXBRYTA [Suspect]
     Active Substance: VOXELOTOR
     Dosage: 3 DF
  3. OXBRYTA [Suspect]
     Active Substance: VOXELOTOR
     Dosage: 2 DF
  4. OXBRYTA [Suspect]
     Active Substance: VOXELOTOR
     Dosage: 500MG 3 TABLETS ONCE DAILY
     Route: 048
     Dates: start: 202005

REACTIONS (27)
  - Sickle cell anaemia with crisis [Recovering/Resolving]
  - Rash pruritic [Unknown]
  - Rash macular [Unknown]
  - Peripheral swelling [Unknown]
  - Thermal burn [Unknown]
  - Fatigue [Unknown]
  - Asthenia [Unknown]
  - Rash [Recovering/Resolving]
  - Swelling [Unknown]
  - Gait inability [Unknown]
  - Skin disorder [Recovering/Resolving]
  - Pain [Unknown]
  - Night sweats [Unknown]
  - Full blood count decreased [Unknown]
  - Weight decreased [Unknown]
  - Dry skin [Recovered/Resolved]
  - Haemoglobin decreased [Unknown]
  - Feeling abnormal [Unknown]
  - Arthralgia [Unknown]
  - Myalgia [Unknown]
  - Pain in extremity [Unknown]
  - Vein disorder [Recovered/Resolved]
  - Illness [Unknown]
  - Malaise [Not Recovered/Not Resolved]
  - Skin discolouration [Unknown]
  - Skin depigmentation [Not Recovered/Not Resolved]
  - Balance disorder [Unknown]

NARRATIVE: CASE EVENT DATE: 20240301
